FAERS Safety Report 22115949 (Version 1)
Quarter: 2023Q1

REPORT INFORMATION
  Report Type: Spontaneous
  Country: US (occurrence: US)
  Receive Date: 20230320
  Receipt Date: 20230320
  Transmission Date: 20230417
  Serious: Yes (Hospitalization, Other)
  Sender: FDA-Public Use
  Company Number: US-drreddys-SPO/USA/23/0162519

PATIENT
  Age: 86 Year
  Sex: Male

DRUGS (2)
  1. METOPROLOL SUCCINATE [Suspect]
     Active Substance: METOPROLOL SUCCINATE
     Indication: Cardiac failure
  2. LISINOPRIL [Concomitant]
     Active Substance: LISINOPRIL
     Indication: Cardiac failure

REACTIONS (2)
  - BRASH syndrome [Recovering/Resolving]
  - Cardiac arrest [Recovered/Resolved]
